FAERS Safety Report 8123529-1 (Version None)
Quarter: 2012Q1

REPORT INFORMATION
  Report Type: 
  Country: None (occurrence: None)
  Receive Date: 20120208
  Receipt Date: 20120202
  Transmission Date: 20120608
  Serious: Yes (Hospitalization, Other)
  Sender: FDA-Public Use
  Company Number: PHEH2012US003038

PATIENT
  Sex: Male

DRUGS (1)
  1. TOBI [Suspect]
     Dosage: 300 MG, BID

REACTIONS (1)
  - INFECTIVE PULMONARY EXACERBATION OF CYSTIC FIBROSIS [None]
